FAERS Safety Report 15297140 (Version 1)
Quarter: 2018Q3

REPORT INFORMATION
  Report Type: Spontaneous
  Country: US (occurrence: US)
  Receive Date: 20180808
  Receipt Date: 20180808
  Transmission Date: 20181010
  Serious: Yes (Hospitalization)
  Sender: FDA-Public Use
  Company Number: None

PATIENT
  Age: 93 Year
  Sex: Male
  Weight: 60.75 kg

DRUGS (1)
  1. RECLAST [Suspect]
     Active Substance: ZOLEDRONIC ACID
     Indication: OSTEOPENIA
     Dosage: ?          QUANTITY:1 NA;?
     Dates: start: 20180709, end: 20180709

REACTIONS (5)
  - Asthenia [None]
  - Gait disturbance [None]
  - Decreased appetite [None]
  - Blood urine present [None]
  - Fatigue [None]

NARRATIVE: CASE EVENT DATE: 20180709
